FAERS Safety Report 9689538 (Version 2)
Quarter: 2013Q4

REPORT INFORMATION
  Report Type: Report from Study
  Country: MX (occurrence: MX)
  Receive Date: 20131115
  Receipt Date: 20131115
  Transmission Date: 20140711
  Serious: Yes (Death)
  Sender: FDA-Public Use
  Company Number: MX-ROCHE-1261939

PATIENT
  Age: 50 Year
  Sex: Male
  Weight: 54 kg

DRUGS (1)
  1. XELODA [Suspect]
     Indication: GASTROINTESTINAL CARCINOMA
     Dosage: 21 DAYS OF TREATMENT AND 7 DAYS OF REST
     Route: 048
     Dates: start: 20130530, end: 201308

REACTIONS (1)
  - Disease progression [Fatal]
